FAERS Safety Report 7734052-8 (Version None)
Quarter: 2011Q3

REPORT INFORMATION
  Report Type: 
  Country: None (occurrence: None)
  Receive Date: 20110907
  Receipt Date: 20110830
  Transmission Date: 20111222
  Serious: Yes (Hospitalization)
  Sender: FDA-Public Use
  Company Number: FR-ROCHE-799775

PATIENT
  Sex: Male

DRUGS (14)
  1. PRAVASTATIN SODIUM [Concomitant]
     Route: 048
  2. FUROSEMIDE [Concomitant]
     Route: 048
  3. RILMENIDINE [Concomitant]
     Route: 048
  4. NOVORAPID [Concomitant]
  5. MEDIATENSYL [Concomitant]
     Route: 048
  6. BROMAZEPAM [Suspect]
     Route: 048
     Dates: end: 20110817
  7. PLAVIX [Concomitant]
     Route: 048
  8. ALLOPURINOL [Concomitant]
     Route: 048
  9. CLONAZEPAM [Suspect]
     Dosage: DOSE ALSO GIVEN AS 0.5 MG DAILY. AND DRUG NAME: RIVOTRIL 2.5MG/ML SOLUTION.
     Route: 048
     Dates: end: 20110817
  10. ATACAND [Concomitant]
     Dosage: SINCE ABOUT 1 YEAR REPLACING COVERSYL.
     Route: 048
     Dates: start: 20100101
  11. AMLODIPINE [Concomitant]
     Route: 048
  12. LEVEMIR [Concomitant]
  13. CELIPROLOL [Concomitant]
     Route: 048
  14. NOVOMIX [Concomitant]

REACTIONS (4)
  - DISEASE PROGRESSION [None]
  - MALAISE [None]
  - DISTURBANCE IN ATTENTION [None]
  - APNOEA [None]
